FAERS Safety Report 7322752-3 (Version None)
Quarter: 2011Q1

REPORT INFORMATION
  Report Type: 
  Country: None (occurrence: None)
  Receive Date: 20110301
  Receipt Date: 20110215
  Transmission Date: 20110831
  Serious: Yes (Hospitalization, Disabling, Congenital Anomaly)
  Sender: FDA-Public Use
  Company Number: GB-RANBAXY-2011R1-41965

PATIENT

DRUGS (4)
  1. VENTOLIN [Concomitant]
     Indication: ASTHMA
     Dosage: UNK, AS NECESSARY
     Route: 055
  2. FLUOXETINE [Suspect]
     Indication: DEPRESSION
     Dosage: 20 MG, QD
     Route: 064
     Dates: start: 20100413, end: 20100617
  3. FEXOFENADINE [Concomitant]
     Indication: SEASONAL ALLERGY
     Dosage: 180 MG, UNK
     Route: 065
     Dates: start: 20090603
  4. CLENIL MODULITE [Concomitant]
     Indication: ASTHMA
     Dosage: UNK, AS NECESSARY
     Route: 055

REACTIONS (1)
  - MULTIPLE CONGENITAL ABNORMALITIES [None]
